FAERS Safety Report 10156065 (Version 1)
Quarter: 2014Q2

REPORT INFORMATION
  Report Type: Spontaneous
  Country: US (occurrence: US)
  Receive Date: 20140506
  Receipt Date: 20140506
  Transmission Date: 20141212
  Serious: Yes (Hospitalization)
  Sender: FDA-Public Use
  Company Number: US-009507513-1405USA001559

PATIENT
  Age: 10 Year
  Sex: Male
  Weight: 37.19 kg

DRUGS (2)
  1. AFRIN [Suspect]
     Indication: PRODUCT USED FOR UNKNOWN INDICATION
     Dosage: 1 DF, UNK
     Route: 045
     Dates: start: 20140426
  2. AFRIN [Suspect]
     Dosage: 1 DF, BID
     Route: 045
     Dates: start: 20140427, end: 20140427

REACTIONS (1)
  - Haemorrhage [Recovered/Resolved]
